FAERS Safety Report 17881592 (Version 3)
Quarter: 2020Q3

REPORT INFORMATION
  Report Type: Report from Study
  Country: US (occurrence: US)
  Receive Date: 20200610
  Receipt Date: 20200713
  Transmission Date: 20201103
  Serious: No
  Sender: FDA-Public Use
  Company Number: US-SA-2020SA146284

PATIENT

DRUGS (3)
  1. ADVAIR HFA [Concomitant]
     Active Substance: FLUTICASONE PROPIONATE\SALMETEROL XINAFOATE
     Indication: ASTHMA
  2. SINGULAIR [Concomitant]
     Active Substance: MONTELUKAST SODIUM
     Indication: ASTHMA
  3. DUPILUMAB [Suspect]
     Active Substance: DUPILUMAB
     Indication: NASAL POLYPS

REACTIONS (7)
  - Anosmia [Unknown]
  - Upper-airway cough syndrome [Unknown]
  - Middle insomnia [Unknown]
  - Nasal congestion [Unknown]
  - Rhinorrhoea [Unknown]
  - Dyspnoea [Unknown]
  - Nasal polypectomy [Unknown]
